FAERS Safety Report 24441257 (Version 3)
Quarter: 2025Q2

REPORT INFORMATION
  Report Type: Spontaneous
  Country: US (occurrence: US)
  Receive Date: 20241016
  Receipt Date: 20250618
  Transmission Date: 20250717
  Serious: No
  Sender: ROCHE
  Company Number: US-ROCHE-3480906

PATIENT
  Age: 52 Year
  Sex: Male

DRUGS (2)
  1. HEMLIBRA [Suspect]
     Active Substance: EMICIZUMAB-KXWH
     Indication: Factor VIII deficiency
     Dosage: 105 MG/0.7ML
     Route: 058
     Dates: start: 202110
  2. KOVALTRY [Concomitant]
     Active Substance: ANTIHEMOPHILIC FACTOR, HUMAN RECOMBINANT

REACTIONS (5)
  - Haemarthrosis [Unknown]
  - Discomfort [Unknown]
  - Haemarthrosis [Unknown]
  - Haemorrhage [Unknown]
  - Pain [Unknown]

NARRATIVE: CASE EVENT DATE: 20231215
